FAERS Safety Report 14966661 (Version 1)
Quarter: 2018Q2

REPORT INFORMATION
  Report Type: Spontaneous
  Country: FR (occurrence: FR)
  Receive Date: 20180604
  Receipt Date: 20180604
  Transmission Date: 20180711
  Serious: Yes (Life-Threatening)
  Sender: FDA-Public Use
  Company Number: FR-TEVA-2018-FR-901208

PATIENT
  Age: 61 Year
  Sex: Female
  Weight: 55 kg

DRUGS (9)
  1. TEMESTA 1 MG, COMPRIM? S?CABLE [Suspect]
     Active Substance: LORAZEPAM
     Indication: ANXIETY
     Dosage: 2 DOSAGE FORMS DAILY;
     Route: 048
  2. LANSOYL [Concomitant]
     Active Substance: MINERAL OIL
     Route: 048
  3. NORMACOL [Concomitant]
     Active Substance: HERBALS\KARAYA GUM
     Route: 048
  4. CLOZAPINE. [Suspect]
     Active Substance: CLOZAPINE
     Indication: PSYCHOTIC DISORDER
     Dosage: 2 DOSAGE FORMS DAILY;
     Route: 048
  5. DUPHALAC [Concomitant]
     Active Substance: LACTULOSE
     Route: 048
  6. MICROPAKINE [Suspect]
     Active Substance: VALPROIC ACID
     Indication: PSYCHOTIC DISORDER
     Dosage: 2 DOSAGE FORMS DAILY;
     Route: 048
  7. THERALENE 4 POUR CENT, SOLUTION BUVABLE EN GOUTTES [Suspect]
     Active Substance: TRIMEPRAZINE
     Indication: SLEEP DISORDER
     Dosage: 30 GTT DAILY;
     Route: 048
  8. LOXAPAC, SOLUTION BUVABLE [Suspect]
     Active Substance: LOXAPINE
     Indication: PSYCHOTIC DISORDER
     Dosage: 40 GTT DAILY;
     Route: 048
  9. PARKINANE L P 5 MG, G?LULE ? LIB?RATION PROLONG?E [Suspect]
     Active Substance: TRIHEXYPHENIDYL HYDROCHLORIDE
     Indication: PYRAMIDAL TRACT SYNDROME
     Dosage: 2 DOSAGE FORMS DAILY;
     Route: 048

REACTIONS (2)
  - Pneumonia aspiration [Recovered/Resolved]
  - Choking [Recovered/Resolved]

NARRATIVE: CASE EVENT DATE: 20180224
